FAERS Safety Report 11934268 (Version 1)
Quarter: 2016Q1

REPORT INFORMATION
  Report Type: Spontaneous
  Country: US (occurrence: None)
  Receive Date: 20160120
  Receipt Date: 20160120
  Transmission Date: 20160526
  Serious: Yes (Other)
  Sender: FDA-Public Use
  Company Number: None

PATIENT
  Age: 77 Year
  Sex: Female
  Weight: 52.16 kg

DRUGS (4)
  1. CALTRATE [Concomitant]
     Active Substance: CALCIUM CARBONATE
  2. AMLODIPINE BESYLATE. [Concomitant]
     Active Substance: AMLODIPINE BESYLATE
  3. BISOPROLOL/HCTZ [Concomitant]
     Active Substance: BISOPROLOL FUMARATE\HYDROCHLOROTHIAZIDE
  4. EDARBYCLOR [Suspect]
     Active Substance: AZILSARTAN KAMEDOXOMIL\CHLORTHALIDONE
     Indication: HYPERTENSION
     Dosage: 1 PILL ONCE DAILY TAKEN BY MOUTH
     Route: 048
     Dates: start: 20160108, end: 20160112

REACTIONS (3)
  - Heart rate increased [None]
  - Dizziness [None]
  - Chest discomfort [None]

NARRATIVE: CASE EVENT DATE: 20160112
